FAERS Safety Report 6801138-1 (Version None)
Quarter: 2010Q2

REPORT INFORMATION
  Report Type: 
  Country: None (occurrence: None)
  Receive Date: 20100629
  Receipt Date: 20100622
  Transmission Date: 20101027
  Serious: Yes (Other)
  Sender: FDA-Public Use
  Company Number: CO-PFIZER INC-2010078974

PATIENT
  Age: 79 Year
  Sex: Female

DRUGS (2)
  1. DETRUSITOL [Suspect]
     Indication: URINARY INCONTINENCE
     Dosage: UNK
     Dates: end: 20100612
  2. CUMADIN [Concomitant]
     Indication: VASCULAR INSUFFICIENCY
     Dosage: 5 MG, 1X/DAY

REACTIONS (1)
  - CYSTITIS [None]
